FAERS Safety Report 25531114 (Version 1)
Quarter: 2025Q3

REPORT INFORMATION
  Report Type: Spontaneous
  Country: US (occurrence: None)
  Receive Date: 20250708
  Receipt Date: 20250708
  Transmission Date: 20251021
  Serious: Yes (Death)
  Sender: FDA-CTU
  Company Number: None

PATIENT
  Age: 87 Year
  Sex: Male
  Weight: 76.7 kg

DRUGS (9)
  1. CABOMETYX [Suspect]
     Active Substance: CABOZANTINIB S-MALATE
     Indication: Renal cancer
     Dosage: FREQUENCY : DAILY;?
     Route: 048
     Dates: start: 20241204, end: 20250614
  2. ELIQUIS [Concomitant]
     Active Substance: APIXABAN
  3. LOPERAMIDE [Concomitant]
     Active Substance: LOPERAMIDE
  4. LORATADINE [Concomitant]
     Active Substance: LORATADINE
  5. metropolol er 25mg [Concomitant]
  6. MIRTAZAPINE [Concomitant]
     Active Substance: MIRTAZAPINE
  7. VITAMINS [Concomitant]
     Active Substance: VITAMINS
  8. PANTOPRAZOLE SODIUM [Concomitant]
     Active Substance: PANTOPRAZOLE SODIUM
  9. zofran odt 8mg [Concomitant]

REACTIONS (2)
  - Therapy interrupted [None]
  - Disease progression [None]

NARRATIVE: CASE EVENT DATE: 20250614
